FAERS Safety Report 7641154-3 (Version None)
Quarter: 2011Q3

REPORT INFORMATION
  Report Type: 
  Country: None (occurrence: None)
  Receive Date: 20110728
  Receipt Date: 20110715
  Transmission Date: 20111222
  Serious: Yes (Hospitalization, Disabling, Other)
  Sender: FDA-Public Use
  Company Number: PHEH2009US04653

PATIENT
  Sex: Female

DRUGS (10)
  1. HEPARIN [Concomitant]
  2. AREDIA [Suspect]
     Dates: start: 20021201, end: 20080501
  3. XELODA [Concomitant]
  4. INSULIN [Concomitant]
     Indication: DIABETES MELLITUS
  5. GLUCOPHAGE [Concomitant]
     Indication: DIABETES MELLITUS
  6. LASIX [Concomitant]
  7. ZOCOR [Concomitant]
  8. ACETAMINOPHEN [Concomitant]
  9. ATENOLOL [Concomitant]
     Indication: HYPERTENSION
  10. FASLODEX [Concomitant]

REACTIONS (14)
  - INJURY [None]
  - ANXIETY [None]
  - CHRONIC SINUSITIS [None]
  - OSTEONECROSIS OF JAW [None]
  - PAIN [None]
  - DIABETIC KETOACIDOSIS [None]
  - CARDIOMEGALY [None]
  - CHOLELITHIASIS [None]
  - DRUG HYPERSENSITIVITY [None]
  - HYPOKALAEMIA [None]
  - HYPOMAGNESAEMIA [None]
  - PHYSICAL DISABILITY [None]
  - DYSPNOEA [None]
  - METASTASES TO BONE [None]
